FAERS Safety Report 7646549-X (Version None)
Quarter: 2011Q3

REPORT INFORMATION
  Report Type: 
  Country: None (occurrence: None)
  Receive Date: 20110801
  Receipt Date: 20110720
  Transmission Date: 20111222
  Serious: Yes (Death, Hospitalization)
  Sender: FDA-Public Use
  Company Number: JP-BAYER-2011-051668

PATIENT
  Age: 49 Year
  Sex: Female

DRUGS (9)
  1. VOLTAREN [Concomitant]
     Dosage: UNK
     Route: 054
     Dates: start: 20101224
  2. NEXAVAR [Suspect]
     Dosage: 400 MG, QD
     Route: 048
     Dates: start: 20101228, end: 20110104
  3. NEXAVAR [Suspect]
     Indication: NEURILEMMOMA MALIGNANT
     Dosage: 400 MG, BID
     Route: 048
     Dates: start: 20101111, end: 20101227
  4. CLOBETASOL PROPIONATE [Concomitant]
     Dosage: UNK
     Route: 061
     Dates: start: 20101111
  5. WHITE PETROLEUM [Concomitant]
     Dosage: UNK
     Route: 061
     Dates: start: 20101111
  6. LANSOPRAZOLE [Concomitant]
     Dosage: UNK
     Route: 048
     Dates: start: 20101209
  7. MUCOSTA [Concomitant]
     Dosage: UNK
     Route: 048
     Dates: start: 20101125
  8. LOXONIN [Concomitant]
     Dosage: UNK
     Route: 048
     Dates: start: 20101125
  9. RED CELLS MAP [Concomitant]
     Dosage: 4 DF
     Route: 042

REACTIONS (4)
  - PALMAR-PLANTAR ERYTHRODYSAESTHESIA SYNDROME [None]
  - HEPATIC FUNCTION ABNORMAL [None]
  - JAUNDICE [None]
  - MULTI-ORGAN FAILURE [None]
